FAERS Safety Report 12555390 (Version 1)
Quarter: 2016Q3

REPORT INFORMATION
  Report Type: Spontaneous
  Country: GB (occurrence: GB)
  Receive Date: 20160714
  Receipt Date: 20160714
  Transmission Date: 20161109
  Serious: Yes (Hospitalization, Other)
  Sender: FDA-Public Use
  Company Number: GB-ACCORD-042273

PATIENT
  Sex: Female

DRUGS (2)
  1. CAPECITABINE. [Suspect]
     Active Substance: CAPECITABINE
     Indication: PRODUCT USED FOR UNKNOWN INDICATION
     Route: 065
  2. HERCEPTIN [Suspect]
     Active Substance: TRASTUZUMAB
     Indication: PRODUCT USED FOR UNKNOWN INDICATION
     Route: 058

REACTIONS (9)
  - Seizure [Unknown]
  - Insomnia [Unknown]
  - Metastases to lung [Unknown]
  - Rash pruritic [Unknown]
  - Night sweats [Unknown]
  - Lung disorder [Unknown]
  - Tremor [Unknown]
  - Fatigue [Unknown]
  - Dyspnoea exertional [Unknown]
